FAERS Safety Report 4397643-0 (Version None)
Quarter: 2004Q3

REPORT INFORMATION
  Report Type: 
  Country: None (occurrence: None)
  Receive Date: 20040712
  Receipt Date: 20040705
  Transmission Date: 20050211
  Serious: Yes (Hospitalization)
  Sender: FDA-Public Use
  Company Number: 200410163BSV

PATIENT
  Age: 60 Year
  Sex: Female

DRUGS (9)
  1. MOXIFLOXACIN HCL [Suspect]
     Indication: PNEUMONIA
     Dosage: 400 MG, TOTAL DAILY, ORAL
     Route: 048
     Dates: start: 20040101
  2. WARFARIN SODIUM [Suspect]
     Indication: PULMONARY HYPERTENSION
     Dosage: 2.5 MG, TOTAL DAILY, ORAL
     Route: 048
     Dates: end: 20040401
  3. TRACLEER [Concomitant]
  4. LEVAXIN [Concomitant]
  5. IMUREL [Concomitant]
  6. IMPUGAN [Concomitant]
  7. PREDNISOLONE [Concomitant]
  8. ACETYLCYSTEINE [Concomitant]
  9. IDEOS [Concomitant]

REACTIONS (7)
  - C-REACTIVE PROTEIN INCREASED [None]
  - DRUG INTERACTION [None]
  - DYSPNOEA [None]
  - HAEMORRHAGE [None]
  - INTERNATIONAL NORMALISED RATIO INCREASED [None]
  - MOUTH HAEMORRHAGE [None]
  - PROTHROMBIN TIME SHORTENED [None]
